FAERS Safety Report 18544011 (Version 1)
Quarter: 2020Q4

REPORT INFORMATION
  Report Type: Report from Study
  Country: None (occurrence: US)
  Receive Date: 20201124
  Receipt Date: 20201124
  Transmission Date: 20210114
  Serious: Yes (Death)
  Sender: FDA-Public Use
  Company Number: US-ABBVIE-20K-163-3663504-00

PATIENT
  Sex: Male
  Weight: 93.07 kg

DRUGS (1)
  1. CREON [Suspect]
     Active Substance: PANCRELIPASE AMYLASE\PANCRELIPASE LIPASE\PANCRELIPASE PROTEASE
     Indication: PANCREATITIS
     Dosage: 3 CAPSULES WITH MEALS 2 CAPSULES WITH SNACKS
     Route: 048
     Dates: start: 20200401

REACTIONS (1)
  - Cardiac failure [Fatal]
